FAERS Safety Report 24358593 (Version 1)
Quarter: 2024Q3

REPORT INFORMATION
  Report Type: Spontaneous
  Country: US (occurrence: US)
  Receive Date: 20240924
  Receipt Date: 20240924
  Transmission Date: 20241017
  Serious: No
  Sender: ASCEND
  Company Number: US-Ascend Therapeutics US, LLC-2161998

PATIENT
  Sex: Male

DRUGS (3)
  1. ANDROGEL [Suspect]
     Active Substance: TESTOSTERONE
     Indication: Product used for unknown indication
     Dates: end: 2024
  2. ANDROGEL [Suspect]
     Active Substance: TESTOSTERONE
     Dates: end: 2024
  3. ANDROGEL [Suspect]
     Active Substance: TESTOSTERONE
     Dates: start: 2024

REACTIONS (2)
  - Hair growth abnormal [Unknown]
  - Asthenia [Unknown]

NARRATIVE: CASE EVENT DATE: 20240101
